FAERS Safety Report 10527237 (Version 1)
Quarter: 2014Q4

REPORT INFORMATION
  Report Type: Spontaneous
  Country: US (occurrence: None)
  Receive Date: 20141016
  Receipt Date: 20141016
  Transmission Date: 20150528
  Serious: No
  Sender: FDA-Public Use
  Company Number: None

PATIENT
  Age: 43 Year
  Sex: Female
  Weight: 92.08 kg

DRUGS (1)
  1. CIPRO [Suspect]
     Active Substance: CIPROFLOXACIN HYDROCHLORIDE
     Indication: KIDNEY INFECTION
     Dosage: 1 PILL
     Dates: start: 20140921, end: 20141001

REACTIONS (6)
  - Poor quality sleep [None]
  - Diarrhoea [None]
  - Muscle spasms [None]
  - Nausea [None]
  - Tendonitis [None]
  - Headache [None]

NARRATIVE: CASE EVENT DATE: 20141014
